FAERS Safety Report 16911678 (Version 2)
Quarter: 2019Q4

REPORT INFORMATION
  Report Type: Spontaneous
  Country: GB (occurrence: GB)
  Receive Date: 20191013
  Receipt Date: 20191212
  Transmission Date: 20200122
  Serious: Yes (Other)
  Sender: FDA-Public Use
  Company Number: GB-AUROBINDO-AUR-APL-2019-065750

PATIENT
  Age: 13 Year
  Sex: Male
  Weight: 35 kg

DRUGS (3)
  1. ATOMOXETINE HARD CAPSULES [Suspect]
     Active Substance: ATOMOXETINE HYDROCHLORIDE
     Indication: ATTENTION DEFICIT/HYPERACTIVITY DISORDER
     Dosage: 18 MILLIGRAM, ONCE A DAY, AT 8 AM
     Route: 048
     Dates: start: 20190731, end: 20190918
  2. INTUNIV [Concomitant]
     Active Substance: GUANFACINE HYDROCHLORIDE
     Indication: PRODUCT USED FOR UNKNOWN INDICATION
     Dosage: 1 DOSAGE FORM, ONCE A DAY, AT 8 AM
     Route: 048
     Dates: start: 20190918
  3. EPILIM [Concomitant]
     Active Substance: VALPROATE SODIUM
     Indication: EPILEPSY
     Dosage: ENDED 3 WEEKS AGO
     Route: 065

REACTIONS (1)
  - Abnormal loss of weight [Recovering/Resolving]
